FAERS Safety Report 4413880-0 (Version None)
Quarter: 2004Q3

REPORT INFORMATION
  Report Type: 
  Country: None (occurrence: None)
  Receive Date: 20040803
  Receipt Date: 20040727
  Transmission Date: 20050211
  Serious: Yes (Hospitalization)
  Sender: FDA-Public Use
  Company Number: PHBS2004JP10069

PATIENT
  Sex: Female

DRUGS (5)
  1. MELLARIL [Suspect]
     Route: 064
     Dates: start: 20040713
  2. PAXIL [Suspect]
     Route: 064
     Dates: start: 20040518, end: 20040712
  3. MEILAX [Concomitant]
     Route: 064
     Dates: start: 20040508, end: 20040712
  4. BENZALIN [Concomitant]
     Route: 064
     Dates: start: 20040713
  5. LENDORM [Concomitant]
     Route: 064

REACTIONS (4)
  - DECREASED ACTIVITY [None]
  - DRUG EXPOSURE DURING PREGNANCY [None]
  - FEEDING PROBLEM IN NEWBORN [None]
  - HYPOTHERMIA NEONATAL [None]
